FAERS Safety Report 6018094-9 (Version None)
Quarter: 2008Q4

REPORT INFORMATION
  Report Type: 
  Country: None (occurrence: None)
  Receive Date: 20081223
  Receipt Date: 20081218
  Transmission Date: 20090506
  Serious: Yes (Other)
  Sender: FDA-Public Use
  Company Number: FR-TEVA-182843ISR

PATIENT
  Age: 60 Year
  Sex: Male

DRUGS (3)
  1. AMOXICILLIN + CLAVULANATE POTASSIUM [Suspect]
     Indication: TOOTH ABSCESS
     Route: 048
  2. METFORMIN HYDROCHLORIDE [Concomitant]
     Indication: DIABETES MELLITUS
  3. SELECTIVE SEROTONIN REUPTAKE INHIBITORS [Concomitant]

REACTIONS (1)
  - BUNDLE BRANCH BLOCK [None]
